FAERS Safety Report 8218549-2 (Version None)
Quarter: 2012Q1

REPORT INFORMATION
  Report Type: 
  Country: None (occurrence: None)
  Receive Date: 20120319
  Receipt Date: 20120308
  Transmission Date: 20120608
  Serious: Yes (Hospitalization)
  Sender: FDA-Public Use
  Company Number: FR-SANOFI-AVENTIS-2012SA015599

PATIENT
  Age: 49 Year
  Sex: Female

DRUGS (6)
  1. PLAVIX [Suspect]
     Dosage: STRENGTH: 75 MG
     Route: 048
     Dates: end: 20120101
  2. EPIRUBICIN HYDROCHLORIDE [Suspect]
     Route: 042
     Dates: start: 20120120, end: 20120120
  3. DEXRAZOXANE HYDROCHLORIDE [Suspect]
     Route: 042
     Dates: start: 20120120, end: 20120120
  4. LEVOTHYROXINE SODIUM [Concomitant]
     Route: 048
  5. LEVOTHYROXINE SODIUM [Concomitant]
     Dosage: DOSE INCREASED
     Route: 048
     Dates: end: 20120101
  6. CYCLOPHOSPHAMIDE [Suspect]
     Route: 042
     Dates: start: 20120120, end: 20120120

REACTIONS (1)
  - TRANSIENT ISCHAEMIC ATTACK [None]
